FAERS Safety Report 8054446-3 (Version None)
Quarter: 2012Q1

REPORT INFORMATION
  Report Type: 
  Country: None (occurrence: None)
  Receive Date: 20120118
  Receipt Date: 20120111
  Transmission Date: 20120608
  Serious: Yes (Other)
  Sender: FDA-Public Use
  Company Number: US-ASTRAZENECA-2012SE02454

PATIENT
  Age: 62 Year
  Sex: Male

DRUGS (4)
  1. COUMADIN [Concomitant]
  2. BLOOD THINNERS [Concomitant]
  3. TOPROL-XL [Suspect]
     Route: 048
  4. ASPIRIN [Concomitant]

REACTIONS (4)
  - CARDIAC DISORDER [None]
  - MYOCARDIAL INFARCTION [None]
  - INFECTION [None]
  - CORONARY ARTERY OCCLUSION [None]
